FAERS Safety Report 6471939-0 (Version None)
Quarter: 2009Q4

REPORT INFORMATION
  Report Type: 
  Country: None (occurrence: None)
  Receive Date: 20091203
  Receipt Date: 20080616
  Transmission Date: 20100525
  Serious: Yes (Other)
  Sender: FDA-Public Use
  Company Number: US-ELI_LILLY_AND_COMPANY-US200804004302

PATIENT
  Age: 17 Year
  Sex: Male

DRUGS (1)
  1. SOMATROPIN [Suspect]
     Dosage: UNK, UNKNOWN

REACTIONS (1)
  - CRANIOPHARYNGIOMA [None]
